FAERS Safety Report 18339956 (Version 1)
Quarter: 2020Q4

REPORT INFORMATION
  Report Type: Spontaneous
  Country: US (occurrence: US)
  Receive Date: 20201002
  Receipt Date: 20201002
  Transmission Date: 20210113
  Serious: No
  Sender: FDA-Public Use
  Company Number: US-SHIRE-US202031987

PATIENT
  Sex: Male
  Weight: 79 kg

DRUGS (1)
  1. PENTASA [Suspect]
     Active Substance: MESALAMINE
     Indication: CROHN^S DISEASE
     Dosage: 500 MILLIGRAM, 1X/DAY:QD
     Route: 065
     Dates: start: 20200914, end: 20200916

REACTIONS (3)
  - Drug ineffective [Unknown]
  - Vomiting [Unknown]
  - Illness [Unknown]
